FAERS Safety Report 20232529 (Version 1)
Quarter: 2021Q4

REPORT INFORMATION
  Report Type: Report from Study
  Country: US (occurrence: US)
  Receive Date: 20211227
  Receipt Date: 20211227
  Transmission Date: 20220304
  Serious: Yes (Hospitalization)
  Sender: FDA-Public Use
  Company Number: US-BRISTOL-MYERS SQUIBB COMPANY-BMS-2021-137394

PATIENT
  Age: 18 Year
  Sex: Male

DRUGS (7)
  1. TRIAMCINOLONE ACETONIDE [Suspect]
     Active Substance: TRIAMCINOLONE ACETONIDE
     Indication: Dermatitis atopic
     Dosage: 0.1 PERCENT, QD
     Route: 061
     Dates: start: 20191213, end: 20210810
  2. UPADACITINIB [Suspect]
     Active Substance: UPADACITINIB
     Indication: Dermatitis atopic
     Dosage: 15 MILLIGRAM, QD
     Route: 048
     Dates: start: 20191213, end: 20211115
  3. UPADACITINIB [Suspect]
     Active Substance: UPADACITINIB
     Dosage: 15 MILLIGRAM, QD
     Route: 048
     Dates: start: 20211123
  4. HYDROCORTISONE [Suspect]
     Active Substance: HYDROCORTISONE
     Indication: Dermatitis atopic
     Dosage: 1 PERCENT, QD
     Route: 061
     Dates: start: 20191227, end: 20210818
  5. ACYCLOVIR [Concomitant]
     Active Substance: ACYCLOVIR
     Indication: Eczema herpeticum
     Dosage: 400 MG, 5 IN 1 DAY
     Route: 048
     Dates: start: 20210329
  6. VANICREAM [Concomitant]
     Active Substance: TITANIUM DIOXIDE\ZINC OXIDE
     Indication: Product used for unknown indication
     Dosage: EMOLLIENT; 2 IN 1 DAY
     Route: 061
     Dates: start: 20191201
  7. ATARAX [Concomitant]
     Active Substance: HYDROXYZINE HYDROCHLORIDE
     Indication: Dermatitis atopic
     Dosage: 25 MG, 1 IN 1 AS REQUIRED
     Route: 048
     Dates: start: 20191213

REACTIONS (1)
  - Eczema Coxsackium [Recovered/Resolved]

NARRATIVE: CASE EVENT DATE: 20211116
